FAERS Safety Report 8249306-9 (Version None)
Quarter: 2012Q1

REPORT INFORMATION
  Report Type: 
  Country: None (occurrence: None)
  Receive Date: 20120316
  Receipt Date: 20110805
  Transmission Date: 20120608
  Serious: No
  Sender: FDA-Public Use
  Company Number: PHHY2011US60151

PATIENT
  Sex: Female

DRUGS (1)
  1. ILARIS [Suspect]
     Dosage: 150 MG, SUBCUTANEOUS
     Route: 058
     Dates: start: 20101201

REACTIONS (1)
  - DRUG INEFFECTIVE [None]
